FAERS Safety Report 15656572 (Version 2)
Quarter: 2018Q4

REPORT INFORMATION
  Report Type: Spontaneous
  Country: BR (occurrence: BR)
  Receive Date: 20181126
  Receipt Date: 20181205
  Transmission Date: 20190205
  Serious: Yes (Hospitalization, Other)
  Sender: FDA-Public Use
  Company Number: BR-SAKK-2018SA314878AA

PATIENT
  Sex: Male
  Weight: 73.5 kg

DRUGS (5)
  1. SEVELAMER [Concomitant]
     Active Substance: SEVELAMER
     Indication: HAEMODIALYSIS
     Dosage: 6 DF, QD
     Route: 065
  2. HUMALOG [Concomitant]
     Active Substance: INSULIN LISPRO
     Indication: DIABETES MELLITUS
     Dosage: UNK
  3. LANTUS [Suspect]
     Active Substance: INSULIN GLARGINE
     Indication: DIABETES MELLITUS
     Dosage: 50 IU, QD
     Route: 065
  4. APIDRA [Suspect]
     Active Substance: INSULIN GLULISINE
     Indication: DIABETES MELLITUS
     Dosage: 3 IU IN EVERY MEAL, PLUS A CORRECTION OF 1 IU IN CASE THE GLYCAEMIA IS 50 HIGHER
     Route: 065
  5. IRON SUCROSE [Concomitant]
     Active Substance: IRON SUCROSE
     Indication: HAEMODIALYSIS
     Dosage: INJECTABLE AMPOULE DILUTED IN 100 ML OF AN UNSPECIFIED SOLUTIONUNK
     Route: 065

REACTIONS (21)
  - Hypertension [Unknown]
  - Fistula [Unknown]
  - Blood glucose increased [Unknown]
  - Swelling [Unknown]
  - Blood creatine increased [Unknown]
  - Injection site pain [Unknown]
  - Rib fracture [Unknown]
  - Haemorrhage [Unknown]
  - Tooth loss [Unknown]
  - Thirst [Unknown]
  - Malaise [Unknown]
  - Central venous catheterisation [Unknown]
  - Asthenia [Unknown]
  - Fall [Unknown]
  - Blood pressure decreased [Unknown]
  - Face injury [Unknown]
  - Nephropathy [Unknown]
  - Haemodialysis [Unknown]
  - Malnutrition [Unknown]
  - Blood testosterone decreased [Unknown]
  - Hypoglycaemia [Unknown]

NARRATIVE: CASE EVENT DATE: 201802
